FAERS Safety Report 4975187-2 (Version None)
Quarter: 2006Q2

REPORT INFORMATION
  Report Type: 
  Country: None (occurrence: None)
  Receive Date: 20060417
  Receipt Date: 20060417
  Transmission Date: 20061013
  Serious: Yes (Congenital Anomaly)
  Sender: FDA-Public Use
  Company Number: None

PATIENT
  Age: 1 Day
  Sex: Male
  Weight: 3.6288 kg

DRUGS (1)
  1. PAXIL [Suspect]
     Indication: DEPRESSION
     Dates: start: 20050101, end: 20051001

REACTIONS (2)
  - DRUG EXPOSURE DURING PREGNANCY [None]
  - POLYDACTYLY [None]
